FAERS Safety Report 9995402 (Version 6)
Quarter: 2018Q3

REPORT INFORMATION
  Report Type: Spontaneous
  Country: US (occurrence: US)
  Receive Date: 20140311
  Receipt Date: 20180927
  Transmission Date: 20181010
  Serious: Yes (Death, Hospitalization, Other)
  Sender: FDA-Public Use
  Company Number: US-009507513-1010USA03065

PATIENT
  Sex: Female

DRUGS (7)
  1. FOSAMAX [Suspect]
     Active Substance: ALENDRONATE SODIUM
     Indication: OSTEOPOROSIS
     Dosage: 70 MG, QW
     Route: 048
     Dates: start: 20100813, end: 20100905
  2. VITAMINS (UNSPECIFIED) [Concomitant]
     Active Substance: VITAMINS
     Dosage: UNK
     Route: 048
     Dates: start: 2000
  3. FOSAMAX [Suspect]
     Active Substance: ALENDRONATE SODIUM
     Indication: OSTEOPOROSIS PROPHYLAXIS
     Dosage: 70 MG, QW
     Route: 048
     Dates: start: 200302, end: 200807
  4. CHOLECALCIFEROL [Concomitant]
     Active Substance: CHOLECALCIFEROL
     Dosage: 2000 IU, QD
     Route: 048
     Dates: start: 2000
  5. ALENDRONATE SODIUM. [Suspect]
     Active Substance: ALENDRONATE SODIUM
     Indication: OSTEOPOROSIS
     Dosage: 70 MG, UNK
     Route: 048
     Dates: start: 20090327, end: 20100521
  6. FOSAMAX [Suspect]
     Active Substance: ALENDRONATE SODIUM
     Dosage: 10 MG, UNK
     Route: 048
     Dates: start: 20000413, end: 20001217
  7. ASCORBIC ACID. [Concomitant]
     Active Substance: ASCORBIC ACID
     Dosage: 500 MG, QD
     Route: 048
     Dates: start: 2000

REACTIONS (27)
  - Femur fracture [Recovered/Resolved]
  - Concussion [Unknown]
  - Osteoarthritis [Unknown]
  - Hand fracture [Unknown]
  - Arthralgia [Unknown]
  - Joint arthroplasty [Unknown]
  - Ankle fracture [Recovered/Resolved]
  - Death [Fatal]
  - Fall [Unknown]
  - Bursitis [Unknown]
  - Meniscus injury [Unknown]
  - Intramedullary rod insertion [Unknown]
  - Knee operation [Unknown]
  - Laceration [Unknown]
  - Impaired healing [Recovered/Resolved]
  - Tooth disorder [Unknown]
  - Oedema peripheral [Unknown]
  - Peripheral swelling [Not Recovered/Not Resolved]
  - Rash [Unknown]
  - Visual impairment [Unknown]
  - Cataract operation [Unknown]
  - Adverse event [Unknown]
  - Femur fracture [Recovering/Resolving]
  - Secretion discharge [Unknown]
  - Fall [Unknown]
  - Tooth extraction [Unknown]
  - Cataract operation [Unknown]

NARRATIVE: CASE EVENT DATE: 20040527
